FAERS Safety Report 9678268 (Version 2)
Quarter: 2013Q4

REPORT INFORMATION
  Report Type: Spontaneous
  Country: US (occurrence: US)
  Receive Date: 20131108
  Receipt Date: 20131118
  Transmission Date: 20140711
  Serious: Yes (Hospitalization)
  Sender: FDA-Public Use
  Company Number: US-PFIZER INC-2013316626

PATIENT
  Age: 56 Year
  Sex: Male

DRUGS (2)
  1. VFEND [Suspect]
     Indication: ASPERGILLUS INFECTION
     Dosage: 250 MG, 2X/DAY
     Dates: start: 20130603
  2. ZYVOX [Suspect]
     Dosage: UNK

REACTIONS (2)
  - Haemorrhage [Unknown]
  - Vomiting [Unknown]
